FAERS Safety Report 5030021-X (Version None)
Quarter: 2006Q2

REPORT INFORMATION
  Report Type: 
  Country: None (occurrence: None)
  Receive Date: 20060614
  Receipt Date: 20060605
  Transmission Date: 20061013
  Serious: Yes (Hospitalization, Other)
  Sender: FDA-Public Use
  Company Number: 2006-06-0324

PATIENT
  Age: 37 Year
  Sex: Female

DRUGS (1)
  1. NASONEX [Suspect]
     Dosage: 1 SPRAY QD NASAL SPRAY
     Dates: start: 20060603, end: 20060605

REACTIONS (2)
  - HYPERTENSION [None]
  - RESPIRATORY DEPRESSION [None]
